FAERS Safety Report 20069049 (Version 1)
Quarter: 2021Q4

REPORT INFORMATION
  Report Type: Spontaneous
  Country: US (occurrence: US)
  Receive Date: 20211115
  Receipt Date: 20211115
  Transmission Date: 20220303
  Serious: No
  Sender: FDA-Public Use
  Company Number: US-PFIZER INC-202101074702

PATIENT
  Age: 88 Year
  Sex: Male

DRUGS (1)
  1. INLYTA [Suspect]
     Active Substance: AXITINIB
     Dosage: 5 MG
     Dates: start: 20210811

REACTIONS (3)
  - Vision blurred [Unknown]
  - Dizziness [Unknown]
  - Chest pain [Unknown]

NARRATIVE: CASE EVENT DATE: 20210101
